FAERS Safety Report 20521063 (Version 2)
Quarter: 2022Q1

REPORT INFORMATION
  Report Type: Report from Study
  Country: FR (occurrence: FR)
  Receive Date: 20220225
  Receipt Date: 20220328
  Transmission Date: 20220423
  Serious: Yes (Other)
  Sender: FDA-Public Use
  Company Number: FR-ABBVIE-22K-056-4293023-00

PATIENT
  Age: 92 Year
  Sex: Male

DRUGS (3)
  1. CARBIDOPA\LEVODOPA [Suspect]
     Active Substance: CARBIDOPA\LEVODOPA
     Indication: Parkinson^s disease
     Route: 050
     Dates: start: 20190828
  2. CARBIDOPA\LEVODOPA [Suspect]
     Active Substance: CARBIDOPA\LEVODOPA
  3. BENZALKONIUM CHLORIDE\BENZYL ALCOHOL\CHLORHEXIDINE [Concomitant]
     Active Substance: BENZALKONIUM CHLORIDE\BENZYL ALCOHOL\CHLORHEXIDINE
     Indication: Infection prophylaxis
     Dates: start: 20220322

REACTIONS (7)
  - Thrombocytosis [Unknown]
  - Device kink [Unknown]
  - Medical device site haemorrhage [Unknown]
  - Discharge [Unknown]
  - Device issue [Unknown]
  - Stoma site erythema [Unknown]
  - Stoma site irritation [Unknown]

NARRATIVE: CASE EVENT DATE: 20200101
